FAERS Safety Report 7646835-3 (Version None)
Quarter: 2011Q3

REPORT INFORMATION
  Report Type: 
  Country: None (occurrence: None)
  Receive Date: 20110729
  Receipt Date: 20110729
  Transmission Date: 20111222
  Serious: No
  Sender: FDA-Public Use
  Company Number: None

PATIENT
  Age: 58 Year
  Sex: Female
  Weight: 64.4108 kg

DRUGS (1)
  1. TAMSULOSIN HCL [Suspect]
     Indication: NEPHROLITHIASIS
     Dosage: 0.4 MG CAP 1 QD ORAL
     Route: 048
     Dates: start: 20100601

REACTIONS (5)
  - PYREXIA [None]
  - PRURITUS [None]
  - RASH [None]
  - OROPHARYNGEAL PAIN [None]
  - SINUS HEADACHE [None]
